FAERS Safety Report 5800739-7 (Version None)
Quarter: 2008Q3

REPORT INFORMATION
  Report Type: 
  Country: None (occurrence: None)
  Receive Date: 20080701
  Receipt Date: 20080620
  Transmission Date: 20090109
  Serious: Yes (Death, Hospitalization)
  Sender: FDA-Public Use
  Company Number: NUBN20080004

PATIENT
  Age: 10 Year
  Sex: Male

DRUGS (11)
  1. NUBAIN [Suspect]
     Dosage: 6 MG, ONCE
     Dates: start: 20080529, end: 20080529
  2. PERFALGAN NEW-BORN AND CHILDREN (PARACETAMOL) 10 MG/ML [Suspect]
     Indication: LEUKAEMIA
     Dosage: 300 MG, 4 TIMES DAILY, INTRAVENOUS
     Route: 042
     Dates: start: 20080505, end: 20080529
  3. KIDROLASE (ASPARAGINASE) [Suspect]
     Indication: LEUKAEMIA
     Dosage: 6000 IU, ONCE DAILY
     Dates: start: 20080514, end: 20080528
  4. CORTANCYL (PREDNISONE ACETATE) [Suspect]
     Indication: LEUKAEMIA
     Dosage: 40 MG, ONCE DAILY
     Dates: start: 20080505, end: 20080525
  5. BACTRIM [Suspect]
     Indication: LEUKAEMIA
     Dosage: 800 MG, 3 TIMES A WEEK
     Dates: start: 20080509, end: 20080529
  6. SPASFON (PHLOROGLUCINOL) [Suspect]
     Dosage: 1/2 VIAL ONCE
     Dates: start: 20080529, end: 20080529
  7. METHOTREXATE [Concomitant]
  8. DAUNORUBICIN HCL [Concomitant]
  9. HYDROCORTISONE HEMISUCCINATE [Concomitant]
  10. CYTARABINE [Concomitant]
  11. ONCOVIN [Concomitant]

REACTIONS (3)
  - HYPERAMYLASAEMIA [None]
  - HYPERLIPASAEMIA [None]
  - PANCREATITIS NECROTISING [None]
